FAERS Safety Report 8052579-9 (Version None)
Quarter: 2012Q1

REPORT INFORMATION
  Report Type: 
  Country: None (occurrence: None)
  Receive Date: 20120118
  Receipt Date: 20120111
  Transmission Date: 20120608
  Serious: Yes (Hospitalization, Other)
  Sender: FDA-Public Use
  Company Number: US-ABBOTT-11P-163-0871412-00

PATIENT
  Sex: Male
  Weight: 104.42 kg

DRUGS (10)
  1. METHOTREXATE [Suspect]
     Indication: RHEUMATOID ARTHRITIS
     Dates: end: 20110501
  2. CLONIDINE [Concomitant]
     Indication: HYPERTENSION
  3. HUMIRA [Suspect]
     Dates: start: 20110901, end: 20111001
  4. LISINOPRIL [Concomitant]
     Indication: HYPERTENSION
  5. DILTIAZEM HCL [Concomitant]
     Indication: HYPERTENSION
  6. INDAPAMIDE [Concomitant]
     Indication: HYPERTENSION
  7. HUMIRA [Suspect]
     Indication: RHEUMATOID ARTHRITIS
     Dates: start: 20080101, end: 20110501
  8. PREDNISONE TAB [Concomitant]
     Indication: RHEUMATOID ARTHRITIS
  9. IRON [Concomitant]
     Indication: ANAEMIA
  10. VITAMIN C [Concomitant]
     Indication: ANAEMIA

REACTIONS (20)
  - ARTHRALGIA [None]
  - BALANCE DISORDER [None]
  - SINUSITIS [None]
  - BLADDER NEOPLASM [None]
  - DYSPHAGIA [None]
  - PLEURAL EFFUSION [None]
  - PAINFUL RESPIRATION [None]
  - ARTHRITIS [None]
  - PERICARDIAL EFFUSION [None]
  - CARDIAC FAILURE [None]
  - PAIN [None]
  - DYSPNOEA [None]
  - CARDIOVASCULAR DISORDER [None]
  - POLYNEUROPATHY [None]
  - CHILLS [None]
  - JOINT SWELLING [None]
  - ERYTHEMA [None]
  - CELLULITIS [None]
  - PYREXIA [None]
  - NEUROPATHY PERIPHERAL [None]
